FAERS Safety Report 16951546 (Version 1)
Quarter: 2019Q4

REPORT INFORMATION
  Report Type: Spontaneous
  Country: US (occurrence: US)
  Receive Date: 20191023
  Receipt Date: 20191023
  Transmission Date: 20200122
  Serious: Yes (Other)
  Sender: FDA-Public Use
  Company Number: US-APOTEX-2019AP023864

PATIENT
  Age: 66 Year
  Sex: Female

DRUGS (7)
  1. IMATINIB. [Suspect]
     Active Substance: IMATINIB MESYLATE
     Indication: CHRONIC MYELOID LEUKAEMIA
     Dosage: 100 MG, BID
     Route: 065
  2. CIPROFLOXACIN. [Suspect]
     Active Substance: CIPROFLOXACIN
     Indication: PRODUCT USED FOR UNKNOWN INDICATION
     Dosage: UNK
     Route: 065
  3. IMATINIB. [Suspect]
     Active Substance: IMATINIB MESYLATE
     Dosage: 50 MG, UNK
     Route: 065
  4. DASATINIB. [Suspect]
     Active Substance: DASATINIB
     Indication: CHRONIC MYELOID LEUKAEMIA
     Dosage: 50 MG, DAILY
     Route: 065
  5. MOXIFLOXACIN. [Suspect]
     Active Substance: MOXIFLOXACIN
     Indication: PRODUCT USED FOR UNKNOWN INDICATION
     Dosage: UNK
     Route: 065
  6. DASATINIB. [Suspect]
     Active Substance: DASATINIB
     Dosage: 25 MG, DAILY
     Route: 065
  7. DASATINIB. [Suspect]
     Active Substance: DASATINIB
     Dosage: 20 MG, DAILY
     Route: 065

REACTIONS (9)
  - Enterococcal infection [Recovered/Resolved]
  - Osteonecrosis of jaw [Recovering/Resolving]
  - Productive cough [Recovered/Resolved]
  - Epistaxis [Unknown]
  - Rhinitis [Unknown]
  - Drug hypersensitivity [Unknown]
  - Swelling face [Unknown]
  - Dyspnoea [Not Recovered/Not Resolved]
  - Haemophilus infection [Recovered/Resolved]
